FAERS Safety Report 4547891-1 (Version None)
Quarter: 2005Q1

REPORT INFORMATION
  Report Type: 
  Country: None (occurrence: None)
  Receive Date: 20050110
  Receipt Date: 20041229
  Transmission Date: 20050727
  Serious: Yes (Other)
  Sender: FDA-Public Use
  Company Number: US-JNJFOC-20041003070

PATIENT
  Sex: Female
  Weight: 88.45 kg

DRUGS (9)
  1. REMICADE [Suspect]
     Route: 042
  2. REMICADE [Suspect]
     Indication: CROHN'S DISEASE
     Route: 042
  3. PROTONIX [Concomitant]
  4. ROWASA [Concomitant]
  5. COLAZAL [Concomitant]
  6. DITROPAN [Concomitant]
  7. DICYCLOMINE [Concomitant]
  8. AMYDRAMINE [Concomitant]
  9. 6 MP [Concomitant]
     Indication: CROHN'S DISEASE

REACTIONS (4)
  - ARTHRALGIA [None]
  - LUPUS-LIKE SYNDROME [None]
  - OROPHARYNGEAL CANDIDIASIS [None]
  - VASCULITIS [None]
